FAERS Safety Report 7231133-2 (Version None)
Quarter: 2011Q1

REPORT INFORMATION
  Report Type: 
  Country: None (occurrence: None)
  Receive Date: 20110118
  Receipt Date: 20110112
  Transmission Date: 20110831
  Serious: Yes (Life-Threatening)
  Sender: FDA-Public Use
  Company Number: CH-ROCHE-753076

PATIENT
  Age: 59 Year
  Sex: Female

DRUGS (13)
  1. NEXIUM [Concomitant]
     Dosage: LONG TERM
  2. TEMGESIC [Concomitant]
     Dosage: LONG TERM
  3. BELOC-ZOK [Concomitant]
     Dosage: LONG TERM
  4. PHYSIOTENS [Concomitant]
     Dosage: LONG TERM
  5. NOROXIN [Concomitant]
     Indication: ANTIBIOTIC PROPHYLAXIS
     Dosage: MONTH(S)
     Dates: start: 20100201
  6. PREDNISONE [Suspect]
     Route: 048
  7. NORFLOXACIN [Concomitant]
     Indication: ANTIBIOTIC PROPHYLAXIS
     Dates: start: 20100201
  8. PROGRAF [Suspect]
     Route: 048
  9. ESIDRIX [Concomitant]
     Dosage: LONG TERM
  10. KEPPRA [Concomitant]
     Dosage: LONG TERM
  11. TORSEMIDE [Concomitant]
     Dosage: LONG TERM
  12. INTERFERON ALFA [Suspect]
     Route: 058
  13. RECORMON [Concomitant]
     Dosage: LONG TERM

REACTIONS (5)
  - RENAL FAILURE ACUTE [None]
  - ENCEPHALOPATHY [None]
  - SEPTIC SHOCK [None]
  - MYOCARDIAL ISCHAEMIA [None]
  - HEPATIC FAILURE [None]
